FAERS Safety Report 16550918 (Version 1)
Quarter: 2019Q3

REPORT INFORMATION
  Report Type: Spontaneous
  Country: US (occurrence: US)
  Receive Date: 20190528
  Receipt Date: 20190528
  Transmission Date: 20191004
  Serious: No
  Sender: FDA-Public Use
  Company Number: None

PATIENT
  Age: 75 Year
  Sex: Male
  Weight: 78 kg

DRUGS (1)
  1. ONDANSETRON [Suspect]
     Active Substance: ONDANSETRON
     Indication: NAUSEA
     Route: 042
     Dates: start: 20190429, end: 20190429

REACTIONS (6)
  - Sinus tachycardia [None]
  - Wheezing [None]
  - Anaphylactic reaction [None]
  - Cough [None]
  - Pyrexia [None]
  - Heart rate decreased [None]

NARRATIVE: CASE EVENT DATE: 20190430
